FAERS Safety Report 24930126 (Version 1)
Quarter: 2025Q1

REPORT INFORMATION
  Report Type: Spontaneous
  Country: PT (occurrence: PT)
  Receive Date: 20250205
  Receipt Date: 20250205
  Transmission Date: 20250408
  Serious: Yes (Life-Threatening)
  Sender: TEVA
  Company Number: None

PATIENT
  Age: 38 Year
  Sex: Female

DRUGS (1)
  1. FREMANEZUMAB [Suspect]
     Active Substance: FREMANEZUMAB
     Indication: Product used for unknown indication
     Dosage: 225 MG 30/30 DAYS: INJECTABLE SOLUTION
     Route: 058
     Dates: start: 20241216, end: 20250109

REACTIONS (3)
  - Respiratory distress [Recovered/Resolved]
  - Lip oedema [Recovered/Resolved]
  - Tachycardia [Recovered/Resolved]

NARRATIVE: CASE EVENT DATE: 20241216
